FAERS Safety Report 11933307 (Version 6)
Quarter: 2016Q2

REPORT INFORMATION
  Report Type: Spontaneous
  Country: US (occurrence: US)
  Receive Date: 20160121
  Receipt Date: 20160531
  Transmission Date: 20160815
  Serious: Yes (Other)
  Sender: FDA-Public Use
  Company Number: US-009507513-1601USA002026

PATIENT
  Age: 19 Year
  Sex: Female
  Weight: 94.33 kg

DRUGS (1)
  1. NEXPLANON [Suspect]
     Active Substance: ETONOGESTREL
     Indication: CONTRACEPTION
     Dosage: 68 MG /EVERY 3 YEARS
     Route: 059
     Dates: start: 20150512, end: 20160125

REACTIONS (7)
  - Haematemesis [Not Recovered/Not Resolved]
  - Scar [Unknown]
  - Haemoptysis [Not Recovered/Not Resolved]
  - Complication associated with device [Recovered/Resolved]
  - Paraesthesia [Not Recovered/Not Resolved]
  - Weight increased [Unknown]
  - Implant site pain [Not Recovered/Not Resolved]

NARRATIVE: CASE EVENT DATE: 2015
